FAERS Safety Report 5386747-1 (Version None)
Quarter: 2007Q3

REPORT INFORMATION
  Report Type: 
  Country: None (occurrence: None)
  Receive Date: 20070713
  Receipt Date: 20070704
  Transmission Date: 20080115
  Serious: Yes (Other)
  Sender: FDA-Public Use
  Company Number: GB-BAUSCH-2007BL002246

PATIENT
  Age: 4 Year
  Sex: Male
  Weight: 17 kg

DRUGS (5)
  1. MINIMS FLUORESCEIN SODIUM 1% [Suspect]
     Indication: HERPES SIMPLEX OPHTHALMIC
     Route: 047
     Dates: start: 20070612, end: 20070612
  2. MINIMS PROXYMETACAINE 0.5% [Suspect]
     Indication: HERPES SIMPLEX OPHTHALMIC
     Route: 047
     Dates: start: 20070612, end: 20070612
  3. BECOTIDE [Concomitant]
     Indication: ASTHMA
     Route: 049
  4. DERMOL [Concomitant]
     Indication: ECZEMA
     Route: 061
     Dates: start: 20070611
  5. SALBUTAMOL [Concomitant]
     Indication: ASTHMA
     Route: 049

REACTIONS (1)
  - ANAPHYLACTIC REACTION [None]
